FAERS Safety Report 13902204 (Version 1)
Quarter: 2017Q3

REPORT INFORMATION
  Report Type: Spontaneous
  Country: US (occurrence: US)
  Receive Date: 20170824
  Receipt Date: 20170824
  Transmission Date: 20171127
  Serious: Yes (Hospitalization)
  Sender: FDA-Public Use
  Company Number: US-ASTRAZENECA-2017SE84486

PATIENT
  Age: 73 Year
  Sex: Female
  Weight: 77.1 kg

DRUGS (7)
  1. PULMICORT FLEXHALER [Suspect]
     Active Substance: BUDESONIDE
     Indication: ATROPHY
     Dosage: BUDESONIDE 0.5/2ML, AS REQUIRED
     Route: 055
  2. PULMICORT FLEXHALER [Suspect]
     Active Substance: BUDESONIDE
     Indication: CHRONIC OBSTRUCTIVE PULMONARY DISEASE
     Route: 055
     Dates: start: 2014
  3. PULMICORT FLEXHALER [Suspect]
     Active Substance: BUDESONIDE
     Indication: LUNG NEOPLASM MALIGNANT
     Dosage: BUDESONIDE 0.5/2ML, AS REQUIRED
     Route: 055
  4. PULMICORT FLEXHALER [Suspect]
     Active Substance: BUDESONIDE
     Indication: LUNG NEOPLASM MALIGNANT
     Route: 055
     Dates: start: 2014
  5. PULMICORT FLEXHALER [Suspect]
     Active Substance: BUDESONIDE
     Indication: CHRONIC OBSTRUCTIVE PULMONARY DISEASE
     Dosage: BUDESONIDE 0.5/2ML, AS REQUIRED
     Route: 055
  6. PULMICORT FLEXHALER [Suspect]
     Active Substance: BUDESONIDE
     Indication: ATROPHY
     Route: 055
     Dates: start: 2014
  7. CHOLESTEROL [Concomitant]
     Active Substance: CHOLESTEROL

REACTIONS (11)
  - Dyspnoea [Unknown]
  - Off label use [Unknown]
  - Coronary artery disease [Recovered/Resolved]
  - Body height decreased [Unknown]
  - Macular degeneration [Unknown]
  - Intentional device misuse [Unknown]
  - Device issue [Unknown]
  - Product use in unapproved indication [Unknown]
  - Cardiac disorder [Recovered/Resolved]
  - Gait disturbance [Unknown]
  - Drug ineffective [Not Recovered/Not Resolved]

NARRATIVE: CASE EVENT DATE: 2014
